FAERS Safety Report 7414365 (Version 3)
Quarter: 2013Q3

REPORT INFORMATION
  Report Type: Spontaneous
  Country: US (occurrence: US)
  Receive Date: 20100609
  Receipt Date: 20130830
  Transmission Date: 20140515
  Serious: Yes (Other)
  Sender: FDA-Public Use
  Company Number: US-JNJFOC-20091101730

PATIENT
  Sex: Female

DRUGS (4)
  1. LEVAQUIN [Suspect]
     Indication: NEPHRITIS
     Route: 048
  2. LEVAQUIN [Suspect]
     Indication: KIDNEY INFECTION
     Route: 048
  3. LEVAQUIN [Suspect]
     Indication: CYSTITIS
     Route: 048
  4. LEVAQUIN [Suspect]
     Indication: CYSTITIS
     Route: 048

REACTIONS (7)
  - Tendonitis [Unknown]
  - Bladder disorder [Unknown]
  - Tendon rupture [Unknown]
  - Back pain [Unknown]
  - Depression [Unknown]
  - Tendon disorder [Unknown]
  - Pain [Unknown]
